FAERS Safety Report 8805910 (Version 1)
Quarter: 2012Q4

REPORT INFORMATION
  Report Type: 
  Country: US (occurrence: None)
  Receive Date: 20120919
  Receipt Date: 20120919
  Transmission Date: 20130627
  Serious: Yes (Hospitalization)
  Sender: FDA-Public Use
  Company Number: None

PATIENT
  Sex: Female
  Weight: 49.1 kg

DRUGS (4)
  1. ISOTRETINOIN [Suspect]
  2. VINCRISTINE SULFATE [Suspect]
  3. CISPLATIN [Suspect]
  4. CYCLOPHOSPHAMIDE [Suspect]

REACTIONS (2)
  - Blood uric acid increased [None]
  - Vomiting [None]
